FAERS Safety Report 16254356 (Version 4)
Quarter: 2019Q3

REPORT INFORMATION
  Report Type: Report from Study
  Country: JP (occurrence: JP)
  Receive Date: 20190430
  Receipt Date: 20190925
  Transmission Date: 20191004
  Serious: Yes (Death, Life-Threatening)
  Sender: FDA-Public Use
  Company Number: JP-ACTELION-A-CH2019-189687

PATIENT
  Age: 51 Year
  Sex: Male

DRUGS (9)
  1. LANSOPRAZOLE. [Concomitant]
     Active Substance: LANSOPRAZOLE
  2. UPTRAVI [Suspect]
     Active Substance: SELEXIPAG
     Indication: PULMONARY ARTERIAL HYPERTENSION
     Dosage: 0.4 MG, QD
     Route: 048
     Dates: start: 20190327, end: 20190416
  3. TRESIBA [Concomitant]
     Active Substance: INSULIN DEGLUDEC
  4. HUMALOG [Concomitant]
     Active Substance: INSULIN LISPRO
  5. LACTULOSE. [Concomitant]
     Active Substance: LACTULOSE
  6. SITAGLIPTIN PHOSPHATE MONOHYDRATE [Concomitant]
     Active Substance: SITAGLIPTIN PHOSPHATE
  7. WARFARIN [Concomitant]
     Active Substance: WARFARIN
  8. AMINOLEBAN EN [Concomitant]
     Active Substance: UNSPECIFIED INGREDIENT
  9. OPSUMIT [Suspect]
     Active Substance: MACITENTAN
     Indication: PULMONARY ARTERIAL HYPERTENSION
     Dosage: 10 MG, QD
     Route: 048
     Dates: start: 20190319, end: 20190416

REACTIONS (4)
  - Arrhythmia [Fatal]
  - Sudden death [Fatal]
  - Ascites [Not Recovered/Not Resolved]
  - Oedema [Not Recovered/Not Resolved]

NARRATIVE: CASE EVENT DATE: 20190415
